FAERS Safety Report 6082635-6 (Version None)
Quarter: 2009Q1

REPORT INFORMATION
  Report Type: 
  Country: None (occurrence: None)
  Receive Date: 20090202
  Receipt Date: 20070809
  Transmission Date: 20090719
  Serious: Yes (Hospitalization)
  Sender: FDA-Public Use
  Company Number: 266341

PATIENT
  Age: 65 Year
  Sex: Male
  Weight: 74.8 kg

DRUGS (3)
  1. NOVOLOG [Suspect]
     Indication: INSULIN-REQUIRING TYPE 2 DIABETES MELLITUS
     Dosage: 1 UNIT PER 10 CARBO RATIO, SUBCUTANEOUS ; SLIDING SCALE, SUBCUTANEOUS
     Route: 058
     Dates: start: 20070101
  2. NOVOLOG [Suspect]
     Indication: INSULIN-REQUIRING TYPE 2 DIABETES MELLITUS
     Dosage: 1 UNIT PER 10 CARBO RATIO, SUBCUTANEOUS ; SLIDING SCALE, SUBCUTANEOUS
     Route: 058
     Dates: start: 20070101
  3. LANTUS [Concomitant]

REACTIONS (1)
  - BLOOD GLUCOSE INCREASED [None]
